FAERS Safety Report 7471769-7 (Version None)
Quarter: 2011Q2

REPORT INFORMATION
  Report Type: 
  Country: None (occurrence: None)
  Receive Date: 20110511
  Receipt Date: 20100420
  Transmission Date: 20111010
  Serious: No
  Sender: FDA-Public Use
  Company Number: A0855895A

PATIENT
  Age: 53 Year
  Sex: Female

DRUGS (5)
  1. TYKERB [Suspect]
     Indication: BREAST CANCER
     Dosage: 5TAB PER DAY
     Route: 048
     Dates: start: 20100201
  2. LEVOXYL [Concomitant]
  3. CABERGOLINE [Concomitant]
  4. XELODA [Suspect]
     Indication: BREAST CANCER
     Dosage: 3TAB TWICE PER DAY
     Route: 048
     Dates: start: 20100101
  5. DESMOPRESSIN ACETATE [Concomitant]

REACTIONS (1)
  - STOMATITIS [None]
